FAERS Safety Report 21041690 (Version 1)
Quarter: 2022Q3

REPORT INFORMATION
  Report Type: Spontaneous
  Country: US (occurrence: US)
  Receive Date: 20220705
  Receipt Date: 20220705
  Transmission Date: 20221027
  Serious: Yes (Death, Life-Threatening, Other)
  Sender: FDA-Public Use
  Company Number: US-CELLTRION INC.-2022US010459

PATIENT

DRUGS (36)
  1. RITUXIMAB [Suspect]
     Active Substance: RITUXIMAB
     Indication: B-cell lymphoma refractory
     Dosage: 375 MG/M2 ON DAY 1, R-DHAP
     Route: 042
  2. RITUXIMAB [Suspect]
     Active Substance: RITUXIMAB
     Dosage: 375 MG/M2 ON DAY 1, R-DHAP
     Route: 042
  3. RITUXIMAB [Suspect]
     Active Substance: RITUXIMAB
     Dosage: 375 MG/M2 ON DAY 1, R-DHAP
     Route: 042
  4. RITUXIMAB [Suspect]
     Active Substance: RITUXIMAB
     Dosage: 375 MG/M2 ON DAY 1, R-ICE
     Route: 042
  5. RITUXIMAB [Suspect]
     Active Substance: RITUXIMAB
     Dosage: 375 MG/M2 ON DAY 1, R-ICE
     Route: 042
  6. RITUXIMAB [Suspect]
     Active Substance: RITUXIMAB
     Dosage: 375 MG/M2 ON DAY 1, R-ICE
     Route: 042
  7. RITUXIMAB [Suspect]
     Active Substance: RITUXIMAB
     Dosage: 375 MG/M2 ON DAY 1, R-DGP
     Route: 042
  8. RITUXIMAB [Suspect]
     Active Substance: RITUXIMAB
     Dosage: 375 MG/M2 ON DAY 1, R-DGP
     Route: 042
  9. RITUXIMAB [Suspect]
     Active Substance: RITUXIMAB
     Dosage: 375 MG/M2 ON DAY 1, R-DGP
     Route: 042
  10. DEXAMETHASONE [Suspect]
     Active Substance: DEXAMETHASONE
     Indication: B-cell lymphoma refractory
     Dosage: 40 MG ON DAYS 1-4, R-DHAP
     Route: 042
  11. DEXAMETHASONE [Suspect]
     Active Substance: DEXAMETHASONE
     Dosage: 40 MG ON DAYS 1-4, R-DHAP
     Route: 042
  12. DEXAMETHASONE [Suspect]
     Active Substance: DEXAMETHASONE
     Dosage: 40 MG ON DAYS 1-4, R-DHAP
     Route: 042
  13. DEXAMETHASONE [Suspect]
     Active Substance: DEXAMETHASONE
     Dosage: 40 MG ON DAYS 1-4, R-GDP
     Route: 042
  14. DEXAMETHASONE [Suspect]
     Active Substance: DEXAMETHASONE
     Dosage: 40 MG ON DAYS 1-4, R-GDP
     Route: 042
  15. DEXAMETHASONE [Suspect]
     Active Substance: DEXAMETHASONE
     Dosage: 40 MG ON DAYS 1-4, R-GDP
     Route: 042
  16. CYTARABINE [Suspect]
     Active Substance: CYTARABINE
     Indication: B-cell lymphoma refractory
     Dosage: 2000 MG/M2 ON DAY 2, TWO INFUSSIONS, R-DHAP
     Route: 042
  17. CYTARABINE [Suspect]
     Active Substance: CYTARABINE
     Dosage: 2000 MG/M2 ON DAY 2, TWO INFUSSIONS, R-DHAP
     Route: 042
  18. CYTARABINE [Suspect]
     Active Substance: CYTARABINE
     Dosage: 2000 MG/M2 ON DAY 2, TWO INFUSSIONS, R-DHAP
     Route: 042
  19. CISPLATIN [Suspect]
     Active Substance: CISPLATIN
     Indication: B-cell lymphoma refractory
     Dosage: 100 MG/M2 ON DAY 1, R-DHAP
     Route: 042
  20. CISPLATIN [Suspect]
     Active Substance: CISPLATIN
     Dosage: 100 MG/M2 ON DAY 1, R-DHAP
     Route: 042
  21. CISPLATIN [Suspect]
     Active Substance: CISPLATIN
     Dosage: 100 MG/M2 ON DAY 1, R-DHAP
     Route: 042
  22. CISPLATIN [Suspect]
     Active Substance: CISPLATIN
     Dosage: 75 MG/M2 ON DAY 1, R-GDP
     Route: 042
  23. CISPLATIN [Suspect]
     Active Substance: CISPLATIN
     Dosage: 75 MG/M2 ON DAY 1, R-GDP
     Route: 042
  24. CISPLATIN [Suspect]
     Active Substance: CISPLATIN
     Dosage: 75 MG/M2 ON DAY 1, R-GDP
     Route: 042
  25. GEMCITABINE [Suspect]
     Active Substance: GEMCITABINE
     Indication: B-cell lymphoma refractory
     Dosage: 1000 MG/M2 ON DAYS 1 AND 8, R-GDP
     Route: 042
  26. GEMCITABINE [Suspect]
     Active Substance: GEMCITABINE
     Dosage: 1000 MG/M2 ON DAYS 1 AND 8, R-GDP
     Route: 042
  27. GEMCITABINE [Suspect]
     Active Substance: GEMCITABINE
     Dosage: 1000 MG/M2 ON DAYS 1 AND 8, R-GDP
     Route: 042
  28. IFOSFAMIDE [Suspect]
     Active Substance: IFOSFAMIDE
     Indication: B-cell lymphoma recurrent
     Dosage: 5000 MG/M2 ON DAY 2, R-ICE
     Route: 042
  29. IFOSFAMIDE [Suspect]
     Active Substance: IFOSFAMIDE
     Dosage: 5000 MG/M2 ON DAY 2, R-ICE
     Route: 042
  30. IFOSFAMIDE [Suspect]
     Active Substance: IFOSFAMIDE
     Dosage: 5000 MG/M2 ON DAY 2, R-ICE
     Route: 042
  31. ETOPOSIDE [Suspect]
     Active Substance: ETOPOSIDE
     Indication: B-cell lymphoma recurrent
     Dosage: 100 MG/M2 ON DAYS 1-3, R-ICE
     Route: 042
  32. ETOPOSIDE [Suspect]
     Active Substance: ETOPOSIDE
     Dosage: 100 MG/M2 ON DAYS 1-3, R-ICE
     Route: 042
  33. ETOPOSIDE [Suspect]
     Active Substance: ETOPOSIDE
     Dosage: 100 MG/M2 ON DAYS 1-3, R-ICE
     Route: 042
  34. CARBOPLATIN [Suspect]
     Active Substance: CARBOPLATIN
     Indication: B-cell lymphoma recurrent
     Dosage: [MAXIMUM DOSE OF 800 MG] ON DAY 2, R-ICE
     Route: 042
  35. CARBOPLATIN [Suspect]
     Active Substance: CARBOPLATIN
     Dosage: [MAXIMUM DOSE OF 800 MG] ON DAY 2, R-ICE
     Route: 042
  36. CARBOPLATIN [Suspect]
     Active Substance: CARBOPLATIN
     Dosage: [MAXIMUM DOSE OF 800 MG] ON DAY 2, R-ICE
     Route: 042

REACTIONS (41)
  - Acute respiratory distress syndrome [Fatal]
  - Sepsis [Fatal]
  - Hypokalaemia [Unknown]
  - Neutropenia [Unknown]
  - Anaemia [Unknown]
  - Thrombocytopenia [Unknown]
  - Cytopenia [Unknown]
  - Febrile neutropenia [Unknown]
  - Leukopenia [Unknown]
  - Hypomagnesaemia [Unknown]
  - Hypophosphataemia [Unknown]
  - Mucosal inflammation [Unknown]
  - Headache [Unknown]
  - Fatigue [Unknown]
  - Diarrhoea [Unknown]
  - Decreased appetite [Unknown]
  - Lymphopenia [Unknown]
  - Vomiting [Unknown]
  - Back pain [Unknown]
  - Abdominal pain [Unknown]
  - Dyspnoea [Unknown]
  - Hypertension [Unknown]
  - Stomatitis [Unknown]
  - Acute kidney injury [Unknown]
  - Constipation [Unknown]
  - Pyrexia [Unknown]
  - Dizziness [Unknown]
  - Insomnia [Unknown]
  - Hypotension [Unknown]
  - Oedema peripheral [Unknown]
  - Arthralgia [Unknown]
  - Cough [Unknown]
  - Myalgia [Unknown]
  - Asthenia [Unknown]
  - Tachycardia [Unknown]
  - Dyspepsia [Unknown]
  - Peripheral sensory neuropathy [Unknown]
  - Bone pain [Unknown]
  - Therapy cessation [Unknown]
  - Disease recurrence [Unknown]
  - Drug ineffective [Unknown]
